FAERS Safety Report 5843706-X (Version None)
Quarter: 2008Q3

REPORT INFORMATION
  Report Type: 
  Country: None (occurrence: None)
  Receive Date: 20080813
  Receipt Date: 20080506
  Transmission Date: 20090109
  Serious: No
  Sender: FDA-Public Use
  Company Number: US-BRISTOL-MYERS SQUIBB COMPANY-14145148

PATIENT
  Age: 62 Year
  Sex: Female

DRUGS (7)
  1. IXEMPRA KIT [Suspect]
     Indication: BREAST CANCER
     Route: 042
     Dates: start: 20080328, end: 20080328
  2. DECADRON SRC [Concomitant]
     Route: 042
  3. NEXIUM [Concomitant]
     Route: 048
     Dates: start: 20080311
  4. ALOXI [Concomitant]
     Route: 042
  5. BENADRYL [Concomitant]
     Route: 042
  6. XELODA [Concomitant]
     Route: 048
     Dates: start: 20080328, end: 20080411
  7. LEXAPRO [Concomitant]
     Route: 048
     Dates: start: 20080118

REACTIONS (2)
  - DRUG ADMINISTRATION ERROR [None]
  - NO ADVERSE EVENT [None]
